FAERS Safety Report 18142777 (Version 1)
Quarter: 2020Q3

REPORT INFORMATION
  Report Type: Report from Study
  Country: US (occurrence: US)
  Receive Date: 20200812
  Receipt Date: 20200812
  Transmission Date: 20201103
  Serious: No
  Sender: FDA-Public Use
  Company Number: NVSC2020US222292

PATIENT
  Age: 77 Year
  Sex: Female

DRUGS (1)
  1. XIIDRA [Suspect]
     Active Substance: LIFITEGRAST
     Indication: BLEPHARITIS
     Dosage: 5 %, ONCE2SDO
     Route: 065
     Dates: start: 202005

REACTIONS (1)
  - Eye discharge [Recovering/Resolving]

NARRATIVE: CASE EVENT DATE: 202005
